FAERS Safety Report 9670709 (Version 1)
Quarter: 2013Q4

REPORT INFORMATION
  Report Type: Spontaneous
  Country: US (occurrence: US)
  Receive Date: 20131106
  Receipt Date: 20131106
  Transmission Date: 20140711
  Serious: Yes (Other)
  Sender: FDA-Public Use
  Company Number: US-RB-059390-13

PATIENT
  Age: 21 Year
  Sex: 0

DRUGS (1)
  1. MUCINEX DM MAXIMUM STRENGTH [Suspect]
     Indication: NASAL CONGESTION
     Dosage: TOOK 2 TABLETS ON 26-OCT-2013 AND 2 TABLETS ON 27-OCT-2013 NOON
     Route: 048
     Dates: start: 20131026

REACTIONS (3)
  - Anxiety [Not Recovered/Not Resolved]
  - Abdominal discomfort [Not Recovered/Not Resolved]
  - Dizziness [Not Recovered/Not Resolved]
